FAERS Safety Report 8940674 (Version 2)
Quarter: 2013Q2

REPORT INFORMATION
  Report Type: Spontaneous
  Country: MX (occurrence: MX)
  Receive Date: 20121203
  Receipt Date: 20130410
  Transmission Date: 20140414
  Serious: Yes (Hospitalization, Other)
  Sender: FDA-Public Use
  Company Number: PHHY2012MX110088

PATIENT
  Age: 85 Year
  Sex: Female

DRUGS (6)
  1. EXELON PATCH [Suspect]
     Indication: OXYGEN CONSUMPTION
     Dosage: 4.6 MG/24 HOURS, DAILY
     Route: 062
     Dates: start: 200904
  2. OMEPRAZOLE [Concomitant]
     Indication: GASTRITIS
  3. LEXAPRO [Concomitant]
     Indication: DEPRESSION
     Dosage: 0.5 DF, UNK
  4. NIMOTOP [Concomitant]
  5. LOSARTAN [Concomitant]
  6. PHENYTOIN [Concomitant]

REACTIONS (5)
  - Cerebrovascular accident [Recovered/Resolved]
  - Hemiplegia [Recovering/Resolving]
  - Speech disorder [Not Recovered/Not Resolved]
  - Abnormal behaviour [Not Recovered/Not Resolved]
  - Fall [Not Recovered/Not Resolved]
